FAERS Safety Report 6894583-X (Version None)
Quarter: 2010Q3

REPORT INFORMATION
  Report Type: 
  Country: None (occurrence: None)
  Receive Date: 20100802
  Receipt Date: 20100720
  Transmission Date: 20110219
  Serious: Yes (Hospitalization)
  Sender: FDA-Public Use
  Company Number: PHHY2010JP41561

PATIENT
  Sex: Male

DRUGS (11)
  1. FAMVIR [Suspect]
     Indication: HERPES ZOSTER
     Dosage: 250 MG, UNK
     Route: 048
     Dates: start: 20100614, end: 20100617
  2. TELMISARTAN [Concomitant]
     Dosage: UNK
  3. AMLODIPINE BESYLATE [Concomitant]
     Dosage: UNK
  4. CARBAMAZEPINE [Concomitant]
     Dosage: UNK
  5. GLIBENCLAMIDE [Concomitant]
     Dosage: UNK
  6. RABEPRAZOLE SODIUM [Concomitant]
     Dosage: UNK
  7. ALFACALCIDOL [Concomitant]
     Dosage: UNK
  8. TICLOPIDINE HYDROCHLORIDE [Concomitant]
     Dosage: UNK
  9. IMIDAPRIL HYDROCHLORIDE [Concomitant]
     Dosage: UNK
  10. NON PYRINE COLD PREPARATION [Concomitant]
  11. LOXOPROFEN SODIUM [Concomitant]

REACTIONS (5)
  - ALTERED STATE OF CONSCIOUSNESS [None]
  - FEELING ABNORMAL [None]
  - HEADACHE [None]
  - RASH [None]
  - SOMNOLENCE [None]
